FAERS Safety Report 18041438 (Version 1)
Quarter: 2020Q3

REPORT INFORMATION
  Report Type: Report from Study
  Country: NL (occurrence: NL)
  Receive Date: 20200719
  Receipt Date: 20200719
  Transmission Date: 20201103
  Serious: Yes (Other)
  Sender: FDA-Public Use
  Company Number: NL-AUROBINDO-AUR-APL-2020-032135

PATIENT
  Age: 5 Year
  Sex: Female

DRUGS (3)
  1. INDOMETACIN [Suspect]
     Active Substance: INDOMETHACIN
     Indication: NEPHRECTOMY
     Dosage: 1.01 MILLIGRAM/KILOGRAM, ONCE A DAY
     Route: 065
  2. ENALAPRIL [Suspect]
     Active Substance: ENALAPRIL
     Indication: NEPHRECTOMY
     Dosage: 0.08 MILLIGRAM/KILOGRAM, ONCE A DAY
     Route: 065
  3. INDOMETACIN [Suspect]
     Active Substance: INDOMETHACIN
     Dosage: 2.02 MILLIGRAM/KILOGRAM, ONCE A DAY
     Route: 065

REACTIONS (4)
  - Transaminases increased [Unknown]
  - Product use in unapproved indication [Unknown]
  - Hypotension [Unknown]
  - Drug ineffective [Unknown]
